FAERS Safety Report 4819622-9 (Version None)
Quarter: 2005Q4

REPORT INFORMATION
  Report Type: 
  Country: None (occurrence: None)
  Receive Date: 20051102
  Receipt Date: 20051024
  Transmission Date: 20060501
  Serious: Yes (Hospitalization)
  Sender: FDA-Public Use
  Company Number: TAP2005Q01902

PATIENT
  Age: 43 Year
  Sex: Female
  Weight: 68.2 kg

DRUGS (14)
  1. PREVACID [Suspect]
     Indication: GASTRIC ULCER
     Dosage: 30 MG, 1 IN 1 D,  PER ORAL
     Route: 048
     Dates: start: 20030101, end: 20050701
  2. PREVACID [Suspect]
     Indication: GASTROOESOPHAGEAL REFLUX DISEASE
     Dosage: 30 MG, 1 IN 1 D,  PER ORAL
     Route: 048
     Dates: start: 20030101, end: 20050701
  3. PREVACID [Suspect]
     Indication: GASTRIC ULCER
     Dosage: 30 MG, 1 IN 1 D,  PER ORAL
     Route: 048
     Dates: start: 20050701
  4. PREVACID [Suspect]
     Indication: GASTROOESOPHAGEAL REFLUX DISEASE
     Dosage: 30 MG, 1 IN 1 D,  PER ORAL
     Route: 048
     Dates: start: 20050701
  5. LORTAB [Suspect]
     Indication: MIGRAINE
     Dosage: 10 MG, AS REQUIRED; ABOUT 12 TABLETS/MONTH PER ORAL
     Route: 048
  6. PERCOCET [Suspect]
     Indication: PAIN
     Dosage: 1 CAP., 4:1 D; 10/500, PER ORAL
     Route: 048
  7. ASPIRIN [Suspect]
     Indication: PAIN
     Dosage: AS REQUIRED, PER ORAL
     Route: 048
  8. ADVIL [Suspect]
     Indication: PAIN
     Dosage: AS REQUIRED, PER ORAL
     Route: 048
  9. ZOLOFT [Concomitant]
  10. ATARAX [Concomitant]
  11. REGLAN [Concomitant]
  12. ZANTAC [Concomitant]
  13. EFFEXOR XR [Concomitant]
  14. DONNATAL PLAIN TABLETS (DONNATAL) [Concomitant]

REACTIONS (4)
  - ADRENAL MASS [None]
  - CHEST PAIN [None]
  - COLITIS [None]
  - PERFORATED ULCER [None]
